FAERS Safety Report 20479823 (Version 2)
Quarter: 2022Q1

REPORT INFORMATION
  Report Type: Spontaneous
  Country: US (occurrence: US)
  Receive Date: 20220216
  Receipt Date: 20220308
  Transmission Date: 20220423
  Serious: No
  Sender: FDA-Public Use
  Company Number: US-PHARMING-PHAUS2022000104

PATIENT

DRUGS (1)
  1. RUCONEST [Suspect]
     Active Substance: HUMAN C1-ESTERASE INHIBITOR
     Indication: Hereditary angioedema
     Dosage: UNK
     Route: 042
     Dates: start: 20171120

REACTIONS (7)
  - Road traffic accident [Unknown]
  - Limb injury [Unknown]
  - Pain [Unknown]
  - Sleep disorder [Unknown]
  - Meniscus injury [Unknown]
  - Periarthritis [Unknown]
  - Malaise [Unknown]

NARRATIVE: CASE EVENT DATE: 20220224
